FAERS Safety Report 6484666-0 (Version None)
Quarter: 2009Q4

REPORT INFORMATION
  Report Type: 
  Country: None (occurrence: None)
  Receive Date: 20091204
  Receipt Date: 20091112
  Transmission Date: 20100525
  Serious: Yes (Hospitalization)
  Sender: FDA-Public Use
  Company Number: 2009JP005761

PATIENT
  Age: 74 Year
  Sex: Male

DRUGS (4)
  1. VESICARE [Suspect]
     Indication: HYPERTONIC BLADDER
     Dosage: 5 MG, UID/QD, ORAL
     Route: 048
     Dates: start: 20090804, end: 20090831
  2. VESICARE [Suspect]
     Indication: NOCTURIA
     Dosage: 5 MG, UID/QD, ORAL
     Route: 048
     Dates: start: 20090804, end: 20090831
  3. VESICARE [Suspect]
     Indication: POLLAKIURIA
     Dosage: 5 MG, UID/QD, ORAL
     Route: 048
     Dates: start: 20090804, end: 20090831
  4. HARNAL (TAMSULOSIN)  ORODISPERSIBLE CR TABLET [Concomitant]

REACTIONS (1)
  - IDIOPATHIC THROMBOCYTOPENIC PURPURA [None]
